FAERS Safety Report 21011121 (Version 1)
Quarter: 2022Q2

REPORT INFORMATION
  Report Type: Spontaneous
  Country: CN (occurrence: CN)
  Receive Date: 20220627
  Receipt Date: 20220627
  Transmission Date: 20220721
  Serious: Yes (Other)
  Sender: FDA-Public Use
  Company Number: CN-009507513-2206CHN006315

PATIENT
  Age: 88 Year
  Sex: Female
  Weight: 60 kg

DRUGS (3)
  1. CILASTATIN SODIUM\IMIPENEM [Suspect]
     Active Substance: CILASTATIN SODIUM\IMIPENEM
     Indication: Bacteraemia
     Dosage: 1 G, EVERY 6 HOURS,INTRAVENOUS DRIP
     Route: 041
     Dates: start: 20220522, end: 20220527
  2. JIA LI XIN [Concomitant]
     Indication: Bacteraemia
     Dosage: 400 MG, Q12H, INTRAVENOUS DRIP
     Route: 041
     Dates: start: 20220525, end: 20220526
  3. JIA LI XIN [Concomitant]
     Dosage: 200 MG, ONCE DAILY, INTRAVENOUS DRIP
     Route: 041
     Dates: start: 20220527, end: 20220530

REACTIONS (1)
  - Delirium [Recovering/Resolving]

NARRATIVE: CASE EVENT DATE: 20220526
